FAERS Safety Report 17367363 (Version 2)
Quarter: 2020Q1

REPORT INFORMATION
  Report Type: Spontaneous
  Country: US (occurrence: US)
  Receive Date: 20200204
  Receipt Date: 20200309
  Transmission Date: 20200409
  Serious: Yes (Other)
  Sender: FDA-Public Use
  Company Number: US-PFIZER INC-2020044266

PATIENT
  Age: 69 Year
  Sex: Female

DRUGS (1)
  1. LYRICA [Suspect]
     Active Substance: PREGABALIN
     Indication: FIBROMYALGIA
     Dosage: 200 MG, DAILY(50 MG 1 CAPSULE TWICE DAILY AND ALSO 2 CAPSULES AT BEDTIME)
     Dates: start: 2007

REACTIONS (2)
  - Foot fracture [Unknown]
  - Pain [Unknown]

NARRATIVE: CASE EVENT DATE: 201909
